FAERS Safety Report 24771186 (Version 1)
Quarter: 2024Q4

REPORT INFORMATION
  Report Type: Spontaneous
  Country: US (occurrence: US)
  Receive Date: 20241224
  Receipt Date: 20241224
  Transmission Date: 20250115
  Serious: Yes (Life-Threatening, Hospitalization, Disabling, Other)
  Sender: UCB
  Company Number: US-UCBSA-2024066277

PATIENT
  Age: 26 Year
  Sex: Male
  Weight: 68 kg

DRUGS (3)
  1. BRIVIACT [Suspect]
     Active Substance: BRIVARACETAM
     Indication: Product used for unknown indication
     Dosage: 200 MILLIGRAM, ONCE DAILY (QD)
     Route: 048
  2. BRIVIACT [Suspect]
     Active Substance: BRIVARACETAM
     Dosage: 150 MILLIGRAM, ONCE DAILY (QD)
  3. CEREZYME [Suspect]
     Active Substance: IMIGLUCERASE
     Indication: Gaucher^s disease
     Dosage: 4800 ENZYME UNIT, WEEKLY (QW)
     Route: 042
     Dates: start: 200209

REACTIONS (13)
  - Seizure [Recovering/Resolving]
  - Dysphagia [Not Recovered/Not Resolved]
  - COVID-19 [Recovering/Resolving]
  - Pneumonia [Recovering/Resolving]
  - Pneumothorax [Not Recovered/Not Resolved]
  - Respiratory disorder [Not Recovered/Not Resolved]
  - Hospitalisation [Unknown]
  - Pyrexia [Unknown]
  - Loss of personal independence in daily activities [Unknown]
  - Weight decreased [Recovered/Resolved]
  - Weight increased [Unknown]
  - Feeding tube user [Unknown]
  - Product dose omission issue [Unknown]

NARRATIVE: CASE EVENT DATE: 20230301
